FAERS Safety Report 8618438-5 (Version None)
Quarter: 2012Q3

REPORT INFORMATION
  Report Type: 
  Country: None (occurrence: None)
  Receive Date: 20120824
  Receipt Date: 20120820
  Transmission Date: 20120928
  Serious: No
  Sender: FDA-Public Use
  Company Number: US-009507513-1208USA008645

PATIENT

DRUGS (3)
  1. VICTRELIS [Suspect]
     Route: 048
  2. PEG-INTRON [Suspect]
     Indication: HEPATITIS C
     Dosage: UNK
     Dates: start: 20120501
  3. REBETOL [Suspect]
     Route: 048

REACTIONS (4)
  - AFFECT LABILITY [None]
  - OVERDOSE [None]
  - HYPOAESTHESIA [None]
  - PRODUCT QUALITY ISSUE [None]
